FAERS Safety Report 9627375 (Version 2)
Quarter: 2013Q4

REPORT INFORMATION
  Report Type: Not Available
  Country: US (occurrence: US)
  Receive Date: 20131016
  Receipt Date: 20131016
  Transmission Date: 20140711
  Serious: No
  Sender: FDA-Public Use
  Company Number: US-LUNDBECK-DKLU1086707

PATIENT
  Sex: Male
  Weight: 58 kg

DRUGS (9)
  1. SABRIL (TABLET) [Suspect]
     Indication: COMPLEX PARTIAL SEIZURES
     Route: 048
     Dates: start: 20121101
  2. SABRIL (TABLET) [Suspect]
     Route: 048
     Dates: start: 20121101
  3. SABRIL (TABLET) [Suspect]
     Route: 048
     Dates: start: 2012
  4. SABRIL (TABLET) [Suspect]
     Route: 048
     Dates: start: 2012
  5. SABRIL (TABLET) [Suspect]
     Route: 048
     Dates: start: 2012
  6. KLONOPIN [Concomitant]
     Indication: PRODUCT USED FOR UNKNOWN INDICATION
  7. VIMPAT [Concomitant]
     Indication: PRODUCT USED FOR UNKNOWN INDICATION
  8. TOPAMAX [Concomitant]
     Indication: PRODUCT USED FOR UNKNOWN INDICATION
  9. LISINOPRIL [Concomitant]
     Indication: PRODUCT USED FOR UNKNOWN INDICATION

REACTIONS (1)
  - Ataxia [Recovered/Resolved]
